FAERS Safety Report 6398890-9 (Version None)
Quarter: 2009Q4

REPORT INFORMATION
  Report Type: 
  Country: None (occurrence: None)
  Receive Date: 20091013
  Receipt Date: 20090929
  Transmission Date: 20100525
  Serious: Yes (Hospitalization)
  Sender: FDA-Public Use
  Company Number: PHEH2009US11395

PATIENT
  Sex: Male
  Weight: 73.016 kg

DRUGS (3)
  1. EXJADE [Suspect]
     Indication: APLASIA PURE RED CELL
     Dosage: 1000 MG DAILY
     Route: 048
     Dates: start: 20090114
  2. EXJADE [Suspect]
     Indication: ANAEMIA
  3. EXJADE [Suspect]
     Indication: IRON OVERLOAD

REACTIONS (10)
  - ABDOMINAL DISCOMFORT [None]
  - ABDOMINAL PAIN [None]
  - ABDOMINAL PAIN UPPER [None]
  - ASCITES [None]
  - CHOLECYSTITIS [None]
  - DIARRHOEA [None]
  - LIVER DISORDER [None]
  - PANCREATITIS [None]
  - PYREXIA [None]
  - SPLENOMEGALY [None]
